FAERS Safety Report 8159391-0 (Version None)
Quarter: 2012Q1

REPORT INFORMATION
  Report Type: 
  Country: None (occurrence: None)
  Receive Date: 20120223
  Receipt Date: 20120213
  Transmission Date: 20120608
  Serious: Yes (Hospitalization, Other)
  Sender: FDA-Public Use
  Company Number: US-ELI_LILLY_AND_COMPANY-US201202003972

PATIENT
  Sex: Female

DRUGS (3)
  1. HUMALOG [Suspect]
     Indication: DIABETES MELLITUS
     Dosage: UNK, PRN
     Dates: start: 20100101
  2. HUMALOG [Suspect]
     Dosage: UNK, PRN
     Dates: start: 20100101
  3. LANTUS [Concomitant]
     Dosage: UNK

REACTIONS (2)
  - POST PROCEDURAL INFECTION [None]
  - CARDIAC OPERATION [None]
